FAERS Safety Report 5427793-9 (Version None)
Quarter: 2007Q3

REPORT INFORMATION
  Report Type: 
  Country: None (occurrence: None)
  Receive Date: 20070828
  Receipt Date: 20070817
  Transmission Date: 20080115
  Serious: Yes (Hospitalization)
  Sender: FDA-Public Use
  Company Number: ES-ROCHE-502445

PATIENT
  Age: 43 Year
  Sex: Male
  Weight: 61.8 kg

DRUGS (9)
  1. ENFUVIRTIDE [Suspect]
     Dosage: DOSAGE FORM: VIAL.
     Route: 058
     Dates: start: 20070517
  2. ENFUVIRTIDE [Suspect]
     Route: 058
     Dates: start: 20060712
  3. IMIPRAMINE [Concomitant]
     Dates: start: 20060714
  4. MIRTAZAPINE [Concomitant]
     Dosage: DRUG REPORTED AS MITARZIPINE.
     Dates: start: 20060714
  5. LORAZEPAM [Concomitant]
     Dates: start: 20060714
  6. LOPINAVIR [Concomitant]
     Indication: SYSTEMIC ANTIVIRAL TREATMENT
     Dates: start: 20060712
  7. RITONAVIR [Concomitant]
     Indication: SYSTEMIC ANTIVIRAL TREATMENT
     Dates: start: 20060712
  8. SAQUINAVIR [Concomitant]
     Indication: SYSTEMIC ANTIVIRAL TREATMENT
     Dates: start: 20060223
  9. DIDANOSINE [Concomitant]
     Indication: SYSTEMIC ANTIVIRAL TREATMENT
     Dates: start: 20060712

REACTIONS (3)
  - DYSARTHRIA [None]
  - MENINGITIS VIRAL [None]
  - MONOPARESIS [None]
